FAERS Safety Report 9226892 (Version 3)
Quarter: 2013Q3

REPORT INFORMATION
  Report Type: Spontaneous
  Country: TW (occurrence: None)
  Receive Date: 20130410
  Receipt Date: 20130703
  Transmission Date: 20140515
  Serious: Yes (Life-Threatening, Hospitalization)
  Sender: FDA-Public Use
  Company Number: 2013-0562

PATIENT
  Age: 82 Year
  Sex: Male

DRUGS (15)
  1. CARFILZOMIB (CARFILZOMIB) (20 MILLIGRAM(S) / SQ. METER, INJECTION [Suspect]
     Indication: PLASMA CELL MYELOMA
     Dosage: (MG, DAYS 1,2)
     Route: 042
     Dates: start: 20130318, end: 20130326
  2. DEXAMETHASONE (DEXAMETHASONE) (DEXAMETHASONE) [Suspect]
     Indication: PLASMA CELL MYELOMA
     Dosage: 7.619 MG ((20 MG,DAYS 1,2,4,5,8,9,11,12, EVERY 21 DAYS)
     Dates: start: 20130318
  3. ASPIRIN [Concomitant]
  4. AMLODIPINE [Concomitant]
  5. ISOSORBIDE- 5-MONOMITRATE [Concomitant]
  6. DOXAZOSIN [Concomitant]
  7. PREDINISOLONE [Concomitant]
  8. NITROGLYCERIN [Concomitant]
  9. METFORMIN [Concomitant]
  10. TAMSULOSIN HC1 [Concomitant]
  11. UREA CREAM [Concomitant]
  12. VALSARTAN [Concomitant]
  13. LIDOCAINE 2 % [Concomitant]
  14. RABEPRAZOLE [Concomitant]
  15. VALACICLOVIR [Concomitant]

REACTIONS (5)
  - Chest discomfort [None]
  - Myocardial infarction [None]
  - Bundle branch block right [None]
  - Cardiomegaly [None]
  - Aortic calcification [None]
